FAERS Safety Report 7218260-0 (Version None)
Quarter: 2011Q1

REPORT INFORMATION
  Report Type: 
  Country: None (occurrence: None)
  Receive Date: 20110110
  Receipt Date: 20110107
  Transmission Date: 20110831
  Serious: No
  Sender: FDA-Public Use
  Company Number: DE-ABBOTT-10P-062-0690167-00

PATIENT
  Sex: Female

DRUGS (5)
  1. NIASPAN [Suspect]
     Dates: start: 20100801
  2. DELIX [Concomitant]
     Indication: PRODUCT USED FOR UNKNOWN INDICATION
  3. NIASPAN [Suspect]
     Indication: PRODUCT USED FOR UNKNOWN INDICATION
     Dates: start: 20100501, end: 20100601
  4. ASPIRIN [Concomitant]
     Indication: PRODUCT USED FOR UNKNOWN INDICATION
  5. DOCITON [Concomitant]
     Indication: PRODUCT USED FOR UNKNOWN INDICATION

REACTIONS (1)
  - HYPERHIDROSIS [None]
